FAERS Safety Report 8473125-1 (Version None)
Quarter: 2012Q2

REPORT INFORMATION
  Report Type: 
  Country: None (occurrence: None)
  Receive Date: 20120627
  Receipt Date: 20120619
  Transmission Date: 20120825
  Serious: Yes (Hospitalization, Other)
  Sender: FDA-Public Use
  Company Number: CH-ABBOTT-12P-151-0928446-00

PATIENT
  Sex: Female

DRUGS (3)
  1. MABTHERA [Suspect]
     Indication: PRODUCT USED FOR UNKNOWN INDICATION
     Dates: start: 20120401
  2. METHOTREXATE [Concomitant]
     Indication: PRODUCT USED FOR UNKNOWN INDICATION
     Dates: start: 20120101
  3. HUMIRA [Suspect]
     Indication: RHEUMATOID ARTHRITIS
     Dates: start: 20111219, end: 20120401

REACTIONS (8)
  - EPILEPSY [None]
  - TREMOR [None]
  - CONFUSIONAL STATE [None]
  - MYOCLONUS [None]
  - MOTOR DYSFUNCTION [None]
  - PYREXIA [None]
  - MENINGITIS [None]
  - PACHYMENINGITIS [None]
